FAERS Safety Report 9468952 (Version 2)
Quarter: 2013Q4

REPORT INFORMATION
  Report Type: Spontaneous
  Country: IT (occurrence: None)
  Receive Date: 20130815
  Receipt Date: 20131007
  Transmission Date: 20140711
  Serious: Yes (Other)
  Sender: FDA-Public Use
  Company Number: AUR-APL-2013-06666

PATIENT
  Age: 84 Year
  Sex: Male

DRUGS (6)
  1. AMLODIPINE [Suspect]
     Indication: PRODUCT USED FOR UNKNOWN INDICATION
     Route: 048
     Dates: start: 20120701, end: 20130630
  2. OLMESARTAN MEDOXOMIL (OLMESARTAN MEDOXOMIL) (TABLET) [Suspect]
     Indication: PRODUCT USED FOR UNKNOWN INDICATION
     Route: 048
     Dates: start: 20120701, end: 20130630
  3. RIOPAN (MAGALDRATE) [Concomitant]
  4. ASCRIPTIN (ASCRIPTIN) [Concomitant]
  5. PANTOPRAZOLE SODIUM (PANTOPRAZOLE SODIUM SESQUIHYDRATE) [Concomitant]
  6. INDOMETACINE (INDOMETACIN) [Concomitant]

REACTIONS (2)
  - Hyponatraemia [None]
  - Syncope [None]
